FAERS Safety Report 13316971 (Version 1)
Quarter: 2017Q1

REPORT INFORMATION
  Report Type: Spontaneous
  Country: US (occurrence: US)
  Receive Date: 20170308
  Receipt Date: 20170308
  Transmission Date: 20170428
  Serious: No
  Sender: FDA-Public Use
  Company Number: US-ASTRAZENECA-2017SE22982

PATIENT
  Age: 25778 Day
  Sex: Male
  Weight: 86.2 kg

DRUGS (1)
  1. MOVANTIK [Suspect]
     Active Substance: NALOXEGOL OXALATE
     Indication: CONSTIPATION
     Route: 048

REACTIONS (3)
  - Amnesia [Unknown]
  - Drug ineffective [Unknown]
  - Hypoacusis [Unknown]

NARRATIVE: CASE EVENT DATE: 20170228
